FAERS Safety Report 5534439-8 (Version None)
Quarter: 2007Q4

REPORT INFORMATION
  Report Type: 
  Country: None (occurrence: None)
  Receive Date: 20071205
  Receipt Date: 20071203
  Transmission Date: 20080405
  Serious: Yes (Hospitalization)
  Sender: FDA-Public Use
  Company Number: A0697319A

PATIENT
  Age: 76 Year
  Sex: Female

DRUGS (5)
  1. LAPATINIB [Suspect]
     Indication: BREAST CANCER
     Dosage: 1500MG PER DAY
     Route: 048
     Dates: start: 20071011
  2. ENABLEX [Concomitant]
     Dates: start: 20070601
  3. ZOMETA [Concomitant]
     Route: 042
     Dates: start: 20050301
  4. M.V.I. [Concomitant]
  5. CALCIUM + VITAMIN D [Concomitant]

REACTIONS (2)
  - ERYTHEMA [None]
  - PYREXIA [None]
